FAERS Safety Report 18907738 (Version 1)
Quarter: 2021Q1

REPORT INFORMATION
  Report Type: Spontaneous
  Country: GB (occurrence: GB)
  Receive Date: 20210218
  Receipt Date: 20210218
  Transmission Date: 20210420
  Serious: No
  Sender: FDA-Public Use
  Company Number: GB-ALKEM LABORATORIES LIMITED-GB-ALKEM-2020-07945

PATIENT
  Age: 69 Year
  Sex: Female

DRUGS (1)
  1. CEPHALEXIN. [Suspect]
     Active Substance: CEPHALEXIN
     Indication: INFECTION PROPHYLAXIS
     Dosage: 125 MG
     Route: 065

REACTIONS (5)
  - Myalgia [Unknown]
  - Neuralgia [Unknown]
  - Diarrhoea [Unknown]
  - Dehydration [Unknown]
  - Concomitant disease aggravated [Unknown]
